FAERS Safety Report 6356829-6 (Version None)
Quarter: 2009Q3

REPORT INFORMATION
  Report Type: 
  Country: None (occurrence: None)
  Receive Date: 20090910
  Receipt Date: 20090910
  Transmission Date: 20100115
  Serious: No
  Sender: FDA-Public Use
  Company Number: None

PATIENT
  Age: 64 Year
  Sex: Male
  Weight: 91 kg

DRUGS (1)
  1. CIPROFLOXACIN HYDROCHLORIDE [Suspect]
     Indication: DIVERTICULITIS
     Dosage: 400MG Q 12 HOURS IV  1 DOSE
     Route: 042
     Dates: start: 20090902, end: 20090902

REACTIONS (2)
  - FEELING ABNORMAL [None]
  - FLUSHING [None]
